FAERS Safety Report 6574381-7 (Version None)
Quarter: 2010Q1

REPORT INFORMATION
  Report Type: 
  Country: None (occurrence: None)
  Receive Date: 20100208
  Receipt Date: 20100127
  Transmission Date: 20100710
  Serious: Yes (Hospitalization)
  Sender: FDA-Public Use
  Company Number: US-GILEAD-2010-0026444

PATIENT
  Sex: Female
  Weight: 54.253 kg

DRUGS (4)
  1. TRUVADA [Suspect]
     Indication: HIV INFECTION
     Route: 048
     Dates: start: 20090915
  2. RALTEGRAVIR [Concomitant]
     Indication: HIV INFECTION
     Route: 048
     Dates: start: 20090915
  3. COCAINE [Concomitant]
     Route: 055
  4. TRAZODONE HCL [Concomitant]
     Indication: INSOMNIA
     Dates: end: 20091224

REACTIONS (2)
  - DEEP VEIN THROMBOSIS [None]
  - IMMUNE RECONSTITUTION SYNDROME [None]
